FAERS Safety Report 19073428 (Version 2)
Quarter: 2021Q2

REPORT INFORMATION
  Report Type: Spontaneous
  Country: US (occurrence: US)
  Receive Date: 20210330
  Receipt Date: 20210519
  Transmission Date: 20210717
  Serious: No
  Sender: FDA-Public Use
  Company Number: US-TEVA-2021-US-1895085

PATIENT
  Age: 33 Year
  Sex: Female
  Weight: 90.26 kg

DRUGS (6)
  1. METFORMIN [Concomitant]
     Active Substance: METFORMIN HYDROCHLORIDE
     Dosage: AS NEEDED FOR REGULATION OF PERIODS AS THE PATIENT REPORTED SHE COULD NOT TAKE BIRTH CONTROL
  2. ADIPEX?P [Suspect]
     Active Substance: PHENTERMINE HYDROCHLORIDE
     Indication: OBESITY
     Dosage: WHITE, OBLONG, SCORED/ADIPEX?P/9/9
     Route: 065
     Dates: start: 2006, end: 2020
  3. ADIPEX?P [Suspect]
     Active Substance: PHENTERMINE HYDROCHLORIDE
     Indication: DECREASED APPETITE
  4. ADDERALL [Suspect]
     Active Substance: AMPHETAMINE ASPARTATE\AMPHETAMINE SULFATE\DEXTROAMPHETAMINE SACCHARATE\DEXTROAMPHETAMINE SULFATE
     Dosage: FORM OF ADMIN: EXTENDED?RELEASE, START DATE: SINCE SHE WAS 24 YEARS OLD
     Route: 065
  5. ADIPEX?P [Suspect]
     Active Substance: PHENTERMINE HYDROCHLORIDE
     Indication: WEIGHT DECREASED
     Route: 065
     Dates: start: 202103
  6. ZOLOFT [Concomitant]
     Active Substance: SERTRALINE HYDROCHLORIDE
     Dosage: SHE WAS 24 YEARS OLD

REACTIONS (7)
  - Food craving [Unknown]
  - Fatigue [Unknown]
  - Product formulation issue [Unknown]
  - Road traffic accident [Unknown]
  - Flushing [Unknown]
  - Body temperature increased [Unknown]
  - Drug ineffective [Unknown]

NARRATIVE: CASE EVENT DATE: 202103
